FAERS Safety Report 13674735 (Version 1)
Quarter: 2017Q2

REPORT INFORMATION
  Report Type: Spontaneous
  Country: US (occurrence: US)
  Receive Date: 20170621
  Receipt Date: 20170621
  Transmission Date: 20170830
  Serious: No
  Sender: FDA-Public Use
  Company Number: US-PFIZER INC-2017264355

PATIENT
  Sex: Female

DRUGS (1)
  1. LYRICA [Suspect]
     Active Substance: PREGABALIN
     Dosage: UNK

REACTIONS (5)
  - Drug hypersensitivity [Unknown]
  - Depressed mood [Unknown]
  - Pain [Unknown]
  - Swelling [Unknown]
  - Loss of personal independence in daily activities [Unknown]
